FAERS Safety Report 4952633-1 (Version None)
Quarter: 2006Q1

REPORT INFORMATION
  Report Type: 
  Country: None (occurrence: None)
  Receive Date: 20060320
  Receipt Date: 20060303
  Transmission Date: 20060701
  Serious: Yes (Hospitalization)
  Sender: FDA-Public Use
  Company Number: TRP_0723_2006

PATIENT
  Age: 51 Year
  Sex: Female
  Weight: 99.8 kg

DRUGS (14)
  1. RIBASPHERE [Suspect]
     Indication: HEPATITIS C
     Dosage: 600 MG BID PO
     Route: 048
     Dates: start: 20051202, end: 20060104
  2. RIBASPHERE [Suspect]
     Indication: HEPATITIS C
     Dosage: 600 MG QDAY PO
     Route: 048
     Dates: start: 20060104, end: 20060107
  3. RIBASPHERE [Suspect]
     Indication: HEPATITIS C
     Dosage: 1000 MG QDAY PO
     Route: 048
     Dates: start: 20060107, end: 20060123
  4. INFERGEN [Suspect]
     Indication: HEPATITIS C
     Dosage: 9 MCG QDAY SC
     Route: 058
     Dates: start: 20051202, end: 20060123
  5. LORATADINE [Concomitant]
  6. ATARAX [Concomitant]
  7. FLUOCINONIDE [Concomitant]
  8. SUMATRIPTAN SUCCINATE [Concomitant]
  9. MULTIVITAMIN [Concomitant]
  10. PREMPRO [Concomitant]
  11. PRILOSEC [Concomitant]
  12. VITAMIN B-12 [Concomitant]
  13. VITAMIN B COMPLEX CAP [Concomitant]
  14. ATARAX [Concomitant]

REACTIONS (6)
  - CHOLELITHIASIS [None]
  - FATIGUE [None]
  - INSOMNIA [None]
  - MIGRAINE [None]
  - PRURITUS [None]
  - PYREXIA [None]
